FAERS Safety Report 17059847 (Version 2)
Quarter: 2019Q4

REPORT INFORMATION
  Report Type: Spontaneous
  Country: US (occurrence: US)
  Receive Date: 20191121
  Receipt Date: 20191213
  Transmission Date: 20200122
  Serious: No
  Sender: FDA-Public Use
  Company Number: US-NOVOPROD-644554

PATIENT
  Age: 83 Year
  Sex: Male

DRUGS (2)
  1. NOVOLOG [Suspect]
     Active Substance: INSULIN ASPART
     Indication: DIABETES MELLITUS
     Dosage: 100 MDD (8 YEARS AGO)
     Route: 058
     Dates: start: 2011
  2. LEVEMIR [Suspect]
     Active Substance: INSULIN DETEMIR
     Indication: DIABETES MELLITUS
     Dosage: 30 MDD (8 YEARS AGO)
     Route: 058
     Dates: start: 2011

REACTIONS (1)
  - Visual impairment [Not Recovered/Not Resolved]
